FAERS Safety Report 9293298 (Version 1)
Quarter: 2013Q2

REPORT INFORMATION
  Report Type: Spontaneous
  Country: US (occurrence: US)
  Receive Date: 20130516
  Receipt Date: 20130516
  Transmission Date: 20140414
  Serious: Yes (Hospitalization)
  Sender: FDA-Public Use
  Company Number: US-ASTRAZENECA-2013SE32335

PATIENT
  Age: 79 Year
  Sex: Female
  Weight: 53.5 kg

DRUGS (8)
  1. NEXIUM [Suspect]
     Indication: OESOPHAGEAL STENOSIS
     Route: 048
     Dates: start: 2002, end: 2008
  2. NEXIUM [Suspect]
     Indication: GASTROOESOPHAGEAL REFLUX DISEASE
     Route: 048
     Dates: start: 2002, end: 2008
  3. NEXIUM [Suspect]
     Indication: OESOPHAGEAL STENOSIS
     Route: 048
     Dates: start: 2008, end: 2012
  4. NEXIUM [Suspect]
     Indication: GASTROOESOPHAGEAL REFLUX DISEASE
     Route: 048
     Dates: start: 2008, end: 2012
  5. DIGOXIN [Concomitant]
     Indication: ATRIAL FIBRILLATION
     Dosage: UNKNOWN
  6. ATENOLOL [Concomitant]
     Indication: HEART RATE
     Dosage: UNKNOWN
  7. BENAZAPREL [Concomitant]
     Indication: BLOOD PRESSURE
     Dosage: UNKNOWN
  8. COUMADIN [Concomitant]

REACTIONS (13)
  - Rotator cuff syndrome [Unknown]
  - Fall [Recovering/Resolving]
  - Osteopenia [Unknown]
  - Osteoarthritis [Not Recovered/Not Resolved]
  - Gait disturbance [Unknown]
  - Dysphagia [Unknown]
  - Arthropathy [Unknown]
  - Sleep disorder due to general medical condition, insomnia type [Unknown]
  - Impaired healing [Unknown]
  - Post procedural complication [Unknown]
  - Arthralgia [Not Recovered/Not Resolved]
  - Intentional drug misuse [Unknown]
  - Intentional drug misuse [Unknown]
